FAERS Safety Report 6851025-8 (Version None)
Quarter: 2010Q3

REPORT INFORMATION
  Report Type: 
  Country: None (occurrence: None)
  Receive Date: 20100716
  Receipt Date: 20071025
  Transmission Date: 20110219
  Serious: No
  Sender: FDA-Public Use
  Company Number: US-PFIZER INC-2007090935

PATIENT
  Sex: Female
  Weight: 78.5 kg

DRUGS (7)
  1. CHANTIX [Suspect]
     Indication: SMOKING CESSATION THERAPY
     Dates: start: 20070601
  2. WARFARIN SODIUM [Concomitant]
     Dates: start: 19950101
  3. ALL OTHER THERAPEUTIC PRODUCTS [Concomitant]
  4. DIAZIDE [Concomitant]
  5. CHOLESTEROL- AND TRIGLYCERIDE REDUCERS [Concomitant]
  6. BETA BLOCKING AGENTS [Concomitant]
  7. CARDIOVASCULAR SYSTEM DRUGS [Concomitant]

REACTIONS (2)
  - MALAISE [None]
  - NAUSEA [None]
